FAERS Safety Report 14934610 (Version 3)
Quarter: 2018Q3

REPORT INFORMATION
  Report Type: Report from Study
  Country: JP (occurrence: JP)
  Receive Date: 20180524
  Receipt Date: 20180906
  Transmission Date: 20181010
  Serious: Yes (Death, Other)
  Sender: FDA-Public Use
  Company Number: JP-009507513-1805JPN001461J

PATIENT
  Age: 76 Year
  Sex: Male
  Weight: 60 kg

DRUGS (1)
  1. KEYTRUDA [Suspect]
     Active Substance: PEMBROLIZUMAB
     Indication: TRANSITIONAL CELL CANCER OF THE RENAL PELVIS AND URETER
     Dosage: 200 MG, Q3W
     Route: 041
     Dates: start: 20180402, end: 20180423

REACTIONS (3)
  - Respiratory disorder [Unknown]
  - Malignant neoplasm progression [Fatal]
  - Cardiac failure [Unknown]

NARRATIVE: CASE EVENT DATE: 20180425
